FAERS Safety Report 7904919-6 (Version None)
Quarter: 2011Q4

REPORT INFORMATION
  Report Type: 
  Country: None (occurrence: None)
  Receive Date: 20111109
  Receipt Date: 20111101
  Transmission Date: 20120403
  Serious: Yes (Hospitalization)
  Sender: FDA-Public Use
  Company Number: PHHY2011SE96483

PATIENT
  Sex: Female

DRUGS (3)
  1. LEVOTHYROXINE SODIUM [Concomitant]
  2. ESTROGENS CONJUGATED [Concomitant]
  3. DICLOFENAC SODIUM [Suspect]
     Dosage: TOOK EVERY OTHER DAY
     Route: 048

REACTIONS (3)
  - RESPIRATORY ARREST [None]
  - EPILEPSY [None]
  - LOSS OF CONSCIOUSNESS [None]
